FAERS Safety Report 13292113 (Version 1)
Quarter: 2017Q1

REPORT INFORMATION
  Report Type: Spontaneous
  Country: ES (occurrence: ES)
  Receive Date: 20170303
  Receipt Date: 20170303
  Transmission Date: 20170428
  Serious: Yes (Other)
  Sender: FDA-Public Use
  Company Number: ES-JNJFOC-20170224014

PATIENT
  Sex: Male

DRUGS (2)
  1. REMICADE [Suspect]
     Active Substance: INFLIXIMAB
     Indication: PSORIASIS
     Route: 042
  2. METHOTREXATE. [Concomitant]
     Active Substance: METHOTREXATE
     Route: 065

REACTIONS (8)
  - Prescribed overdose [Unknown]
  - Psoriatic arthropathy [Unknown]
  - Limb deformity [Unknown]
  - Superinfection bacterial [Unknown]
  - Nail dystrophy [Unknown]
  - Off label use [Unknown]
  - Psoriasis [Unknown]
  - Major depression [Unknown]
